FAERS Safety Report 26146807 (Version 1)
Quarter: 2025Q4

REPORT INFORMATION
  Report Type: Spontaneous
  Country: US (occurrence: US)
  Receive Date: 20251211
  Receipt Date: 20251211
  Transmission Date: 20260118
  Serious: Yes (Hospitalization, Other)
  Sender: ELI LILLY AND COMPANY
  Company Number: US-ELI_LILLY_AND_COMPANY-US202512008453

PATIENT
  Age: 63 Year
  Sex: Female

DRUGS (12)
  1. EMGALITY [Suspect]
     Active Substance: GALCANEZUMAB-GNLM
     Indication: Migraine
     Dosage: 120 MG, MONTHLY (1/M), PAST DEVICES
     Route: 058
     Dates: start: 202301
  2. EMGALITY [Suspect]
     Active Substance: GALCANEZUMAB-GNLM
     Dosage: 120 MG, MONTHLY (1/M)
     Route: 058
     Dates: start: 20251203
  3. PERCOCET [Concomitant]
     Active Substance: ACETAMINOPHEN\OXYCODONE HYDROCHLORIDE
     Indication: Pain
     Dosage: UNK UNK, UNKNOWN
     Route: 065
     Dates: start: 202101
  4. FETZIMA [Concomitant]
     Active Substance: LEVOMILNACIPRAN HYDROCHLORIDE
     Indication: Depression
     Dosage: UNK UNK, UNKNOWN
     Route: 065
  5. FETZIMA [Concomitant]
     Active Substance: LEVOMILNACIPRAN HYDROCHLORIDE
     Indication: Anxiety
  6. FAMOTIDINE [Concomitant]
     Active Substance: FAMOTIDINE
     Indication: Depression
     Dosage: 20 MG, UNKNOWN
     Route: 065
  7. FAMOTIDINE [Concomitant]
     Active Substance: FAMOTIDINE
     Indication: Anxiety
  8. ROSUVASTATIN [Concomitant]
     Active Substance: ROSUVASTATIN
     Indication: Blood cholesterol increased
     Dosage: UNK UNK, UNKNOWN
     Route: 065
     Dates: start: 202301
  9. CEFIXIME [Concomitant]
     Active Substance: CEFIXIME
     Indication: Muscle spasms
     Dosage: UNK UNK, UNKNOWN
     Route: 065
     Dates: start: 201701
  10. ADDERALL [Concomitant]
     Active Substance: AMPHETAMINE ASPARTATE\AMPHETAMINE SULFATE\DEXTROAMPHETAMINE SACCHARATE\DEXTROAMPHETAMINE SULFATE
     Indication: Attention deficit hyperactivity disorder
     Dosage: UNK UNK, UNKNOWN
     Route: 065
     Dates: start: 201701
  11. ROPINIROLE [Concomitant]
     Active Substance: ROPINIROLE
     Indication: Restless legs syndrome
     Dosage: UNK UNK, UNKNOWN
     Route: 065
     Dates: start: 201801
  12. FLUOXETINE HYDROCHLORIDE [Concomitant]
     Active Substance: FLUOXETINE HYDROCHLORIDE
     Indication: Muscle spasms
     Dosage: UNK UNK, UNKNOWN
     Route: 065

REACTIONS (4)
  - Cerebrovascular accident [Unknown]
  - Cardiac disorder [Unknown]
  - Weight increased [Unknown]
  - Injection site pain [Unknown]

NARRATIVE: CASE EVENT DATE: 20251110
